FAERS Safety Report 15211262 (Version 1)
Quarter: 2018Q3

REPORT INFORMATION
  Report Type: Spontaneous
  Country: US (occurrence: US)
  Receive Date: 20180629
  Receipt Date: 20180629
  Transmission Date: 20181010
  Serious: No
  Sender: FDA-Public Use
  Company Number: None

PATIENT
  Age: 68 Year
  Sex: Female

DRUGS (1)
  1. FORTEO [Suspect]
     Active Substance: TERIPARATIDE
     Dates: start: 20180510, end: 20180629

REACTIONS (4)
  - Dysphonia [None]
  - Pain in extremity [None]
  - Oropharyngeal pain [None]
  - Fatigue [None]

NARRATIVE: CASE EVENT DATE: 20180510
